FAERS Safety Report 20374630 (Version 2)
Quarter: 2023Q2

REPORT INFORMATION
  Report Type: Report from Study
  Country: BR (occurrence: BR)
  Receive Date: 20220125
  Receipt Date: 20230525
  Transmission Date: 20230721
  Serious: Yes (Other)
  Sender: FDA-Public Use
  Company Number: BR-SHIRE-BR201917487

PATIENT
  Sex: Female
  Weight: 62 kg

DRUGS (3)
  1. HUMAN IMMUNOGLOBULIN G\HYALURONIDASE RECOMBINANT HUMAN [Suspect]
     Active Substance: HUMAN IMMUNOGLOBULIN G\HYALURONIDASE RECOMBINANT HUMAN
     Indication: Primary immunodeficiency syndrome
     Dosage: 150 MILLILITER
     Route: 058
  2. HUMAN IMMUNOGLOBULIN G\HYALURONIDASE RECOMBINANT HUMAN [Suspect]
     Active Substance: HUMAN IMMUNOGLOBULIN G\HYALURONIDASE RECOMBINANT HUMAN
     Dosage: 200 MILLILITER, Q4WEEKS
     Route: 058
     Dates: start: 2018
  3. Covid-19 vaccine [Concomitant]
     Dosage: UNK
     Route: 065

REACTIONS (3)
  - Pharyngitis [Recovering/Resolving]
  - Pyrexia [Unknown]
  - Inappropriate schedule of product administration [Unknown]
